FAERS Safety Report 13496518 (Version 1)
Quarter: 2017Q2

REPORT INFORMATION
  Report Type: Spontaneous
  Country: ZA (occurrence: ZA)
  Receive Date: 20170428
  Receipt Date: 20170428
  Transmission Date: 20170830
  Serious: Yes (Hospitalization)
  Sender: FDA-Public Use
  Company Number: PHHY2017ZA061650

PATIENT

DRUGS (1)
  1. EXJADE [Suspect]
     Active Substance: DEFERASIROX
     Indication: THALASSAEMIA
     Dosage: 20 MG/KG, UNK
     Route: 048
     Dates: start: 2010

REACTIONS (6)
  - Hypophosphataemia [Recovering/Resolving]
  - Renal tubular dysfunction [Recovering/Resolving]
  - Jaundice [Recovering/Resolving]
  - Arthralgia [Recovering/Resolving]
  - Fanconi syndrome acquired [Recovering/Resolving]
  - Hepatitis [Recovering/Resolving]

NARRATIVE: CASE EVENT DATE: 2010
